FAERS Safety Report 9501167 (Version 3)
Quarter: 2014Q1

REPORT INFORMATION
  Report Type: Spontaneous
  Country: US (occurrence: US)
  Receive Date: 20130905
  Receipt Date: 20140108
  Transmission Date: 20141002
  Serious: Yes (Death, Other)
  Sender: FDA-Public Use
  Company Number: US-PFIZER INC-2013255708

PATIENT
  Age: 66 Year
  Sex: Female

DRUGS (15)
  1. RAPAMUNE [Suspect]
     Indication: PROPHYLAXIS AGAINST TRANSPLANT REJECTION
     Dosage: 2 MG, DAILY
     Route: 048
     Dates: start: 20101004
  2. RAPAMUNE [Suspect]
     Indication: RENAL IMPAIRMENT
     Dosage: 2 MG, DAILY
     Route: 048
     Dates: start: 20121126
  3. RAPAMUNE [Suspect]
     Dosage: 1 MG, UNK
     Dates: start: 20130321
  4. XARELTO [Concomitant]
     Indication: ANTICOAGULANT THERAPY
     Dosage: 15 MG, DAILY
     Dates: start: 20130101
  5. TIKOSYN [Concomitant]
     Indication: ATRIAL FIBRILLATION
     Dosage: 125 UG, 2X/DAY
     Route: 048
     Dates: start: 20130510
  6. CRESTOR [Concomitant]
     Indication: HYPERLIPIDAEMIA
     Dosage: 40 MG, DAILY
     Route: 048
     Dates: start: 20120709
  7. ASPIRIN [Concomitant]
     Dosage: 81 MG, DAILY
     Route: 048
     Dates: start: 20120709
  8. CALCIUM CARBONATE/ERGOCALCIFEROL [Concomitant]
     Dosage: 600 MG, 2X/DAY
     Dates: start: 20101108
  9. CELLCEPT [Concomitant]
     Indication: IMMUNOSUPPRESSION
     Dosage: 500 MG, 2X/DAY
     Route: 048
     Dates: start: 20100924
  10. MAGNESIUM OXIDE [Concomitant]
     Dosage: 400 MG, 2X/DAY
     Route: 048
     Dates: start: 20120611
  11. METOPROLOL [Concomitant]
     Dosage: 25 MG, DAILY
     Dates: start: 20120909
  12. NITROGLYCERIN [Concomitant]
     Dosage: 0.4 MG, PRN
     Route: 060
     Dates: start: 20120911
  13. WELLBUTRIN [Concomitant]
     Indication: DEPRESSION
     Dosage: 150 MG, DAILY
     Route: 048
     Dates: start: 20100806
  14. MULTIVITAMINS [Concomitant]
     Dosage: 1 DF, DAILY
     Route: 048
     Dates: start: 20100531
  15. ZETIA [Concomitant]
     Indication: HYPERLIPIDAEMIA
     Dosage: 10 MG, DAILY
     Route: 048
     Dates: start: 20130520

REACTIONS (14)
  - Death [Fatal]
  - Myocardial infarction [Unknown]
  - Atrial fibrillation [Unknown]
  - Gastrointestinal haemorrhage [Unknown]
  - Weight increased [Unknown]
  - Asthenia [Unknown]
  - Arthralgia [Unknown]
  - Urinary tract infection [Unknown]
  - Dizziness [Unknown]
  - Gait disturbance [Unknown]
  - Migraine [Unknown]
  - Fluid retention [Unknown]
  - Blood creatinine increased [Unknown]
  - Off label use [Unknown]
